FAERS Safety Report 6244872-7 (Version None)
Quarter: 2009Q2

REPORT INFORMATION
  Report Type: 
  Country: None (occurrence: None)
  Receive Date: 20090625
  Receipt Date: 20090618
  Transmission Date: 20091009
  Serious: Yes (Death)
  Sender: FDA-Public Use
  Company Number: A0793536A

PATIENT
  Sex: Female
  Weight: 50 kg

DRUGS (3)
  1. SERETIDE [Suspect]
     Indication: CHRONIC OBSTRUCTIVE PULMONARY DISEASE
     Dosage: 1PUFF TWICE PER DAY
     Route: 065
     Dates: start: 20090107, end: 20090525
  2. CAPTOPRIL [Concomitant]
     Dosage: 2TAB PER DAY
     Dates: start: 20080801, end: 20090525
  3. HYDROCHLOROTHIAZIDE [Concomitant]
     Dates: start: 20080401, end: 20090525

REACTIONS (1)
  - DEATH [None]
